FAERS Safety Report 24888837 (Version 2)
Quarter: 2025Q1

REPORT INFORMATION
  Report Type: Spontaneous
  Country: US (occurrence: US)
  Receive Date: 20250127
  Receipt Date: 20250321
  Transmission Date: 20250409
  Serious: Yes (Death, Hospitalization)
  Sender: BOEHRINGER INGELHEIM
  Company Number: US-Komodo Health-a23aa000005RB4XAAW

PATIENT
  Age: 77 Year
  Sex: Male

DRUGS (1)
  1. OFEV [Suspect]
     Active Substance: NINTEDANIB
     Indication: Pulmonary fibrosis
     Dates: start: 202403

REACTIONS (2)
  - Death [Fatal]
  - Escherichia infection [Recovering/Resolving]

NARRATIVE: CASE EVENT DATE: 20250207
